FAERS Safety Report 24392419 (Version 1)
Quarter: 2024Q4

REPORT INFORMATION
  Report Type: Report from Study
  Country: US (occurrence: US)
  Receive Date: 20241003
  Receipt Date: 20241003
  Transmission Date: 20250115
  Serious: Yes (Other)
  Sender: ABBVIE
  Company Number: US-ABBVIE-5947436

PATIENT
  Age: 7 Year
  Sex: Female

DRUGS (1)
  1. CREON [Suspect]
     Active Substance: PANCRELIPASE AMYLASE\PANCRELIPASE LIPASE\PANCRELIPASE PROTEASE
     Indication: Pancreatic failure
     Route: 048
     Dates: start: 20140301

REACTIONS (2)
  - Pancreas islet cell transplant [Not Recovered/Not Resolved]
  - Pancreatectomy [Not Recovered/Not Resolved]

NARRATIVE: CASE EVENT DATE: 20160401
